FAERS Safety Report 23533303 (Version 1)
Quarter: 2024Q1

REPORT INFORMATION
  Report Type: Spontaneous
  Country: FR (occurrence: FR)
  Receive Date: 20240216
  Receipt Date: 20240216
  Transmission Date: 20240409
  Serious: Yes (Hospitalization)
  Sender: FDA-Public Use
  Company Number: None

PATIENT
  Age: 66 Year
  Sex: Female

DRUGS (5)
  1. CISPLATIN [Suspect]
     Active Substance: CISPLATIN
     Indication: Cholangiocarcinoma
     Dosage: CHEMOTHERAPY TREATMENT
     Route: 042
     Dates: start: 20231113, end: 20231113
  2. GEMCITABINE [Suspect]
     Active Substance: GEMCITABINE
     Indication: Cholangiocarcinoma
     Dosage: CHEMOTHERAPY TREATMENT
     Route: 042
     Dates: start: 20231113, end: 20231113
  3. IMFINZI [Suspect]
     Active Substance: DURVALUMAB
     Indication: Cholangiocarcinoma
     Dosage: CHEMOTHERAPY TREATMENT?IMFINZI SOLUTION, 50 MG/ML, INTRAVENOUS INFUSION
     Route: 042
     Dates: start: 20231113, end: 20231113
  4. SKENAN [Suspect]
     Active Substance: MORPHINE SULFATE
     Indication: Pain
     Dosage: 10 MG MORNING AND EVENING?SKENAN L.P. 10 MG, PROLONGED RELEASE MICROGRANULES IN CAPSULE
     Route: 048
     Dates: start: 20231115, end: 20231125
  5. MORPHINE SULFATE [Suspect]
     Active Substance: MORPHINE SULFATE
     Indication: Pain
     Dosage: DOSAGE: 1 CCID_50 5 MG IF NEEDED?ACTISKENAN 5 MG, CAPSULE
     Route: 048
     Dates: start: 20231115, end: 20231125

REACTIONS (1)
  - Hypoglycaemia [Not Recovered/Not Resolved]

NARRATIVE: CASE EVENT DATE: 20231115
